FAERS Safety Report 20688507 (Version 1)
Quarter: 2022Q2

REPORT INFORMATION
  Report Type: Spontaneous
  Country: GB (occurrence: GB)
  Receive Date: 20220408
  Receipt Date: 20220408
  Transmission Date: 20220721
  Serious: No
  Sender: FDA-Public Use
  Company Number: GB-LUPIN PHARMACEUTICALS INC.-2022-05018

PATIENT
  Age: 5 Decade
  Sex: Female
  Weight: 104 kg

DRUGS (9)
  1. SERTRALINE [Suspect]
     Active Substance: SERTRALINE HYDROCHLORIDE
     Indication: Product used for unknown indication
     Dosage: UNK
     Route: 065
  2. METFORMIN [Suspect]
     Active Substance: METFORMIN HYDROCHLORIDE
     Indication: Gestational diabetes
     Dosage: UNK
     Route: 065
  3. INSULIN HUMAN [Suspect]
     Active Substance: INSULIN HUMAN
     Indication: Gestational diabetes
     Dosage: 14 UNIT, QD (THE PATIENT RECEIVED 14 UNITS NOCTE AT 29 WEEKS AND 4 DAYS OF GESTATION)
     Route: 065
  4. INSULIN HUMAN [Suspect]
     Active Substance: INSULIN HUMAN
     Dosage: 30 UNIT, QD (AT 30 WEEKS AND 2 DAYS OF GESTATION, HER INSULIN DOSE WAS 30 UNITS PER DAY AND HER DAIL
     Route: 065
  5. INSULIN HUMAN [Suspect]
     Active Substance: INSULIN HUMAN
     Dosage: 130 UNIT, QD (PATIENT INCREMENT WAS INCREASED TO 10 UNITS PER DAY AT 30 WEEKS AND 5 DAYS OF GESTATIO
     Route: 065
  6. INSULIN HUMAN [Suspect]
     Active Substance: INSULIN HUMAN
     Dosage: 260 UNIT, QD (PATIENT INCREMENT WAS INCREASED TO 10 UNITS PER DAY AT 30 WEEKS AND 5 DAYS OF GESTATIO
  7. INSULIN HUMAN [Suspect]
     Active Substance: INSULIN HUMAN
     Dosage: 250 UNIT, QD (AT 36 WEEKS AND 1 DAY OF GESTATION, HER DOSE OF INSULIN WAS REDUCED FROM 260 UNITS TO
     Route: 065
  8. ASPIRIN [Suspect]
     Active Substance: ASPIRIN
     Indication: Product used for unknown indication
     Dosage: UNK
     Route: 065
  9. ENOXAPARIN [Suspect]
     Active Substance: ENOXAPARIN
     Indication: Product used for unknown indication
     Dosage: UNK
     Route: 065

REACTIONS (2)
  - Exposure during pregnancy [Unknown]
  - Normal newborn [Unknown]
